FAERS Safety Report 7150596-4 (Version None)
Quarter: 2010Q4

REPORT INFORMATION
  Report Type: 
  Country: None (occurrence: None)
  Receive Date: 20101210
  Receipt Date: 20101206
  Transmission Date: 20110411
  Serious: Yes (Hospitalization, Other)
  Sender: FDA-Public Use
  Company Number: US-PFIZER INC-HQWYE375013FEB03

PATIENT
  Sex: Female
  Weight: 68 kg

DRUGS (1)
  1. PREMPRO [Suspect]
     Indication: HORMONE REPLACEMENT THERAPY
     Dosage: 0.625MG/UNSPECIFIED
     Route: 048
     Dates: start: 19940101, end: 20011201

REACTIONS (3)
  - BREAST CANCER [None]
  - UTERINE LEIOMYOMA [None]
  - UTERINE POLYP [None]
